FAERS Safety Report 7502338-8 (Version None)
Quarter: 2011Q2

REPORT INFORMATION
  Report Type: 
  Country: None (occurrence: None)
  Receive Date: 20110525
  Receipt Date: 20110519
  Transmission Date: 20111010
  Serious: Yes (Other)
  Sender: FDA-Public Use
  Company Number: PH-ELI_LILLY_AND_COMPANY-PH201105005952

PATIENT
  Sex: Female

DRUGS (2)
  1. EFFIENT [Suspect]
     Dosage: 10 MG, UNKNOWN
     Route: 065
  2. HEPARIN [Concomitant]
     Indication: DEEP VEIN THROMBOSIS
     Dosage: UNK, UNKNOWN
     Route: 065

REACTIONS (2)
  - DEEP VEIN THROMBOSIS [None]
  - CEREBRAL HAEMORRHAGE [None]
